FAERS Safety Report 13559623 (Version 1)
Quarter: 2017Q2

REPORT INFORMATION
  Report Type: Report from Study
  Country: BE (occurrence: BE)
  Receive Date: 20170518
  Receipt Date: 20170518
  Transmission Date: 20170830
  Serious: Yes (Hospitalization)
  Sender: FDA-Public Use
  Company Number: BE-SAOL THERAPEUTICS-2017SAO00872

PATIENT

DRUGS (8)
  1. BACLOFEN. [Suspect]
     Active Substance: BACLOFEN
     Dosage: 125.2 ?G, \DAY
     Route: 037
     Dates: start: 20160726
  2. URICRAN [Concomitant]
  3. PROMAGNOR [Concomitant]
  4. STEOVIT [Concomitant]
     Active Substance: CALCIUM CARBONATE
  5. ATARAX [Concomitant]
     Active Substance: HYDROXYZINE HYDROCHLORIDE
  6. BACLOFEN. [Suspect]
     Active Substance: BACLOFEN
     Dosage: 108.1 ?G, \DAY
     Route: 037
     Dates: start: 20160712, end: 20160726
  7. URFANDYN [Concomitant]
  8. ZALDIAR [Concomitant]
     Active Substance: ACETAMINOPHEN\TRAMADOL HYDROCHLORIDE

REACTIONS (3)
  - Abdominal rigidity [Recovered/Resolved]
  - Surgery [Unknown]
  - Pain [Not Recovered/Not Resolved]

NARRATIVE: CASE EVENT DATE: 2016
